FAERS Safety Report 4825203-3 (Version None)
Quarter: 2005Q4

REPORT INFORMATION
  Report Type: 
  Country: None (occurrence: None)
  Receive Date: 20051109
  Receipt Date: 20051031
  Transmission Date: 20060501
  Serious: Yes (Other)
  Sender: FDA-Public Use
  Company Number: 2005107436

PATIENT
  Age: 60 Year
  Sex: Male

DRUGS (3)
  1. ALDACTONE [Suspect]
     Indication: ILL-DEFINED DISORDER
     Dosage: 25 MG, ORAL
     Route: 048
     Dates: start: 20040101
  2. ENALAPRIL MALEATE [Concomitant]
  3. LASIX [Concomitant]

REACTIONS (1)
  - PLATELET COUNT DECREASED [None]
